FAERS Safety Report 7278488 (Version 2)
Quarter: 2012Q4

REPORT INFORMATION
  Report Type: 
  Country: ES (occurrence: ES)
  Receive Date: 20100215
  Receipt Date: 20121022
  Transmission Date: 20130627
  Serious: Yes (Hospitalization)
  Sender: FDA-Public Use
  Company Number: ES-AMGEN-QUU390048

PATIENT
  Age: 59 Year
  Sex: Male
  Weight: 77.7 kg

DRUGS (18)
  1. NEULASTA [Suspect]
     Indication: CHEMOTHERAPY
     Dosage: 6 mg, qd
     Route: 058
     Dates: start: 20100129
  2. CYCLOPHOSPHAMIDE [Concomitant]
     Dosage: 1410 mg, UNK
     Route: 042
     Dates: start: 20100128
  3. VINCRISTINE SULFATE [Concomitant]
     Dosage: 2 mg, UNK
     Route: 042
     Dates: start: 20100128
  4. DOXORUBICIN HYDROCHLORIDE [Concomitant]
     Dosage: 94 mg, UNK
     Dates: start: 20100128
  5. METHYLPREDNISOLONE [Concomitant]
     Dosage: 125 mg, UNK
     Route: 042
     Dates: start: 20100128
  6. OMEPRAZOLE [Concomitant]
     Dosage: 20 mg, UNK
     Route: 048
     Dates: start: 20100128
  7. PIPERACILLIN / TAZOBACTAM [Concomitant]
     Dosage: UNK UNK, q8h
     Route: 042
     Dates: start: 20100129
  8. ALLOPURINOL [Concomitant]
     Dosage: 300 mg, UNK
     Route: 048
     Dates: start: 20100128
  9. SODIUM BICARBONATE [Concomitant]
     Dosage: 1000 mg, q6h
     Route: 048
     Dates: start: 20100128
  10. METOCLOPRAMIDE [Concomitant]
     Dosage: 10 mg, q6h
     Route: 042
     Dates: start: 20100128
  11. ONDANSETRON [Concomitant]
     Dosage: 8 mg, q8h
     Route: 042
     Dates: start: 20100128
  12. DEXTROSE AND SODIUM CHLORIDE INJECTION [Concomitant]
     Dosage: 500 ml, q8h
     Route: 042
     Dates: start: 20100129
  13. KCL [Concomitant]
     Dosage: 15 mEq, q8h
     Route: 042
     Dates: start: 20100129
  14. FUROSEMIDE [Concomitant]
     Dosage: 20 mg, q12h
     Route: 042
     Dates: start: 20100128
  15. PREDNISONE [Concomitant]
     Dosage: 120 mg, UNK
     Route: 048
     Dates: start: 20100129
  16. PARACETAMOL [Concomitant]
     Dosage: 1 g, q8h
     Route: 042
     Dates: start: 20100128
  17. SALBUTAMOL [Concomitant]
     Dosage: 2.5 mg, q6h
     Route: 055
     Dates: start: 20100129
  18. IPRATROPIUM BROMIDE [Concomitant]
     Dosage: 250 mug, q6h
     Route: 055
     Dates: start: 20100129

REACTIONS (2)
  - Accidental overdose [Recovered/Resolved]
  - No adverse event [Recovered/Resolved]
